FAERS Safety Report 8405976-3 (Version None)
Quarter: 2012Q2

REPORT INFORMATION
  Report Type: 
  Country: None (occurrence: None)
  Receive Date: 20120604
  Receipt Date: 20120524
  Transmission Date: 20120825
  Serious: Yes (Other)
  Sender: FDA-Public Use
  Company Number: CA-JNJFOC-20120519056

PATIENT
  Sex: Female
  Weight: 64.6 kg

DRUGS (7)
  1. REMICADE [Suspect]
     Indication: CROHN'S DISEASE
     Route: 042
     Dates: start: 20110618
  2. REMICADE [Suspect]
     Dosage: 8TH INFUSION
     Route: 042
     Dates: start: 20120412
  3. PREVACID [Concomitant]
     Route: 065
  4. PREDNISONE [Concomitant]
     Route: 065
  5. OXYCONTIN [Concomitant]
     Route: 065
  6. PANTHENOL [Concomitant]
     Route: 065
  7. GABAPENTIN [Concomitant]
     Route: 065

REACTIONS (2)
  - HYPOAESTHESIA [None]
  - MYALGIA [None]
